FAERS Safety Report 5758416-7 (Version None)
Quarter: 2008Q2

REPORT INFORMATION
  Report Type: 
  Country: None (occurrence: None)
  Receive Date: 20080603
  Receipt Date: 20080603
  Transmission Date: 20081010
  Serious: Yes (Hospitalization, Other)
  Sender: FDA-Public Use
  Company Number: None

PATIENT
  Age: 53 Year
  Sex: Female
  Weight: 147.419 kg

DRUGS (1)
  1. DIGITEK             BERTEK [Suspect]
     Indication: CARDIAC DISORDER
     Dosage: ONE PILL    DAILY   PO
     Route: 048
     Dates: start: 20010101, end: 20080403

REACTIONS (4)
  - DIZZINESS [None]
  - HEADACHE [None]
  - HEART RATE IRREGULAR [None]
  - INFLUENZA LIKE ILLNESS [None]
